FAERS Safety Report 4990968-7 (Version None)
Quarter: 2006Q2

REPORT INFORMATION
  Report Type: 
  Country: None (occurrence: None)
  Receive Date: 20060428
  Receipt Date: 20060414
  Transmission Date: 20061013
  Serious: No
  Sender: FDA-Public Use
  Company Number: US200604002659

PATIENT
  Sex: Female

DRUGS (4)
  1. CYMBALTA [Suspect]
     Indication: DEPRESSION
     Dosage: SEE IMAGE
     Dates: start: 20060101
  2. PROZAC [Suspect]
     Dates: start: 20000101
  3. TRAZODONE HCL [Concomitant]
  4. ADVIL [Concomitant]

REACTIONS (8)
  - ANGER [None]
  - DEPRESSION [None]
  - DISTURBANCE IN ATTENTION [None]
  - HEPATIC PAIN [None]
  - SPEECH DISORDER [None]
  - THINKING ABNORMAL [None]
  - TREMOR [None]
  - WALKING AID USER [None]
